FAERS Safety Report 18676617 (Version 2)
Quarter: 2021Q1

REPORT INFORMATION
  Report Type: Spontaneous
  Country: CA (occurrence: CA)
  Receive Date: 20201229
  Receipt Date: 20210311
  Transmission Date: 20210419
  Serious: Yes (Death)
  Sender: FDA-Public Use
  Company Number: CA-PFIZER INC-2020126194

PATIENT
  Age: 57 Year
  Sex: Female
  Weight: 36 kg

DRUGS (11)
  1. ZIRABEV [Suspect]
     Active Substance: BEVACIZUMAB-BVZR
     Indication: LUNG NEOPLASM MALIGNANT
     Dosage: 5 MG/KG, EVERY 3 WEEKS
     Route: 042
  2. ZIRABEV [Suspect]
     Active Substance: BEVACIZUMAB-BVZR
     Dosage: 400 MG, EVERY 3 WEEKS
     Route: 042
     Dates: start: 20200404
  3. ZIRABEV [Suspect]
     Active Substance: BEVACIZUMAB-BVZR
     Dosage: 10 MG/KG, EVERY 2 WEEKS
     Route: 042
     Dates: start: 20200425
  4. ZIRABEV [Suspect]
     Active Substance: BEVACIZUMAB-BVZR
     Dosage: 400 MG, EVERY 2 WEEKS
     Route: 042
  5. ZIRABEV [Suspect]
     Active Substance: BEVACIZUMAB-BVZR
     Dosage: 10 MG/KG (400 MG), EVERY 2 WEEKS
     Route: 042
     Dates: start: 20200902
  6. ZIRABEV [Suspect]
     Active Substance: BEVACIZUMAB-BVZR
     Dosage: 10 MG/KG, EVERY 2 WEEKS
     Route: 042
     Dates: start: 20200722
  7. ZIRABEV [Suspect]
     Active Substance: BEVACIZUMAB-BVZR
     Dosage: 10 MG/KG (400 MG), EVERY 2 WEEKS
     Route: 042
     Dates: start: 20200819
  8. ZIRABEV [Suspect]
     Active Substance: BEVACIZUMAB-BVZR
     Dosage: 350 MG EVERY 2 WEEKS
     Route: 042
     Dates: start: 20201112, end: 20201112
  9. ZIRABEV [Suspect]
     Active Substance: BEVACIZUMAB-BVZR
     Dosage: 10 MG/KG, EVERY 2 WEEKS
     Route: 042
     Dates: start: 20200425
  10. ACH TEMOZOLOMIDE [Concomitant]
     Dosage: UNK
  11. ZIRABEV [Suspect]
     Active Substance: BEVACIZUMAB-BVZR
     Dosage: 350 MG EVERY 2 WEEKS
     Route: 042
     Dates: start: 20200930

REACTIONS (9)
  - Heart rate increased [Unknown]
  - Fall [Unknown]
  - Incorrect dose administered [Unknown]
  - Product use issue [Unknown]
  - Product dose omission issue [Unknown]
  - Off label use [Unknown]
  - Death [Fatal]
  - Condition aggravated [Unknown]
  - Gait disturbance [Unknown]

NARRATIVE: CASE EVENT DATE: 20200525
